FAERS Safety Report 6722127-1 (Version None)
Quarter: 2010Q2

REPORT INFORMATION
  Report Type: 
  Country: None (occurrence: None)
  Receive Date: 20100512
  Receipt Date: 20100428
  Transmission Date: 20101027
  Serious: Yes (Hospitalization)
  Sender: FDA-Public Use
  Company Number: ES-ELI_LILLY_AND_COMPANY-ES201005000059

PATIENT
  Sex: Female
  Weight: 54 kg

DRUGS (17)
  1. FLUOXETINE HYDROCHLORIDE [Suspect]
     Dates: start: 20080101
  2. MOVICOL [Concomitant]
     Indication: CONSTIPATION PROPHYLAXIS
     Dates: start: 20100305
  3. ENOXAPARIN SODIUM [Concomitant]
     Indication: HAEMOSTASIS
     Dates: start: 20100304
  4. UROKINASE [Concomitant]
     Dates: start: 20100415, end: 20100415
  5. HYDROCORTISONE [Concomitant]
     Indication: PAIN
     Dates: start: 20100325, end: 20100325
  6. DEXAMETHASONE [Concomitant]
     Indication: PAIN
     Dates: start: 20100331
  7. FENTANYL [Concomitant]
     Indication: PAIN
  8. MORPHINE [Concomitant]
     Indication: PAIN
     Dates: start: 20100404, end: 20100416
  9. ONDANSETRON [Concomitant]
     Indication: VOMITING
  10. OMEPRAZOLE [Concomitant]
     Indication: GASTRITIS
     Dates: start: 20080101
  11. LORAZEPAM [Concomitant]
     Indication: DEPRESSION
  12. TRAZODONE [Concomitant]
     Indication: DEPRESSION
  13. HALOPERIDOL [Concomitant]
     Indication: DEPRESSION
     Dates: end: 20100422
  14. COTRIM [Concomitant]
     Indication: DEVICE RELATED INFECTION
  15. PARACETAMOL [Concomitant]
     Indication: PYREXIA
     Dates: start: 20100331
  16. AUGMENTIN '125' [Concomitant]
     Indication: PYREXIA
     Dates: start: 20100331, end: 20100411
  17. BLOOD AND RELATED PRODUCTS [Concomitant]
     Indication: HAEMOGLOBIN DECREASED
     Dates: start: 20100331, end: 20100331

REACTIONS (3)
  - BRADYPHRENIA [None]
  - PYREXIA [None]
  - SOMNOLENCE [None]
